FAERS Safety Report 7357813-6 (Version None)
Quarter: 2011Q1

REPORT INFORMATION
  Report Type: 
  Country: None (occurrence: None)
  Receive Date: 20110314
  Receipt Date: 20110314
  Transmission Date: 20110831
  Serious: No
  Sender: FDA-Public Use
  Company Number: None

PATIENT
  Age: 61 Year
  Sex: Male
  Weight: 85.7 kg

DRUGS (1)
  1. BENDAMUSTINE [Suspect]
     Dosage: 140 MG OTHER IV
     Route: 042
     Dates: start: 20110114, end: 20110310

REACTIONS (12)
  - NAUSEA [None]
  - BLOOD ALBUMIN DECREASED [None]
  - BLOOD URIC ACID DECREASED [None]
  - BLOOD LACTATE DEHYDROGENASE INCREASED [None]
  - HYPERBILIRUBINAEMIA [None]
  - MALAISE [None]
  - INTERNATIONAL NORMALISED RATIO INCREASED [None]
  - DIARRHOEA [None]
  - VOMITING [None]
  - APHAGIA [None]
  - REFUSAL OF TREATMENT BY PATIENT [None]
  - LIVER FUNCTION TEST ABNORMAL [None]
